FAERS Safety Report 9243048 (Version 1)
Quarter: 2013Q2

REPORT INFORMATION
  Report Type: Spontaneous
  Country: US (occurrence: US)
  Receive Date: 20130419
  Receipt Date: 20130419
  Transmission Date: 20140414
  Serious: Yes (Life-Threatening)
  Sender: FDA-Public Use
  Company Number: US-ELI_LILLY_AND_COMPANY-US201304004789

PATIENT
  Sex: 0

DRUGS (2)
  1. EFFIENT [Suspect]
     Dosage: 60 MG, SINGLE
  2. EFFIENT [Suspect]
     Dosage: UNK

REACTIONS (1)
  - Circulatory collapse [Recovered/Resolved]
